FAERS Safety Report 20487135 (Version 3)
Quarter: 2022Q2

REPORT INFORMATION
  Report Type: Spontaneous
  Country: JP (occurrence: JP)
  Receive Date: 20220217
  Receipt Date: 20220404
  Transmission Date: 20220721
  Serious: Yes (Disabling, Other)
  Sender: FDA-Public Use
  Company Number: JP-BAXTER-2022BAX003323

PATIENT
  Age: 10 Year
  Sex: Female

DRUGS (8)
  1. CYCLOPHOSPHAMIDE [Suspect]
     Active Substance: CYCLOPHOSPHAMIDE
     Indication: Ewing^s sarcoma
     Dosage: DAY 1 (CPA)
     Route: 041
  2. IFEX [Suspect]
     Active Substance: IFOSFAMIDE
     Indication: Ewing^s sarcoma
     Dosage: (DAY21-25) (IFO)
     Route: 041
  3. PIRARUBICIN HYDROCHLORIDE [Suspect]
     Active Substance: PIRARUBICIN HYDROCHLORIDE
     Indication: Ewing^s sarcoma
     Dosage: 40MG/M2/DAY (THR) (DAY 1, 2)
     Route: 042
  4. VINCRISTINE SULFATE [Suspect]
     Active Substance: VINCRISTINE SULFATE
     Indication: Ewing^s sarcoma
     Dosage: 2 MG/M2/DAY (VCR) (DAY-1,8,15)
     Route: 042
  5. ETOPOSIDE [Suspect]
     Active Substance: ETOPOSIDE
     Indication: Ewing^s sarcoma
     Dosage: 120 MG/M2/DAY DR (VP-16) (DAY 21-25)
     Route: 041
  6. ETOPOSIDE [Suspect]
     Active Substance: ETOPOSIDE
     Dosage: 200 MG/M2/DAY DR
     Route: 041
  7. MELPHALAN [Suspect]
     Active Substance: MELPHALAN
     Indication: Ewing^s sarcoma
     Dosage: 90 MG/M2/DAY DR (L-PAM)
     Route: 041
  8. CARBOPLATIN [Suspect]
     Active Substance: CARBOPLATIN
     Indication: Ewing^s sarcoma
     Dosage: 400 MG/M2/DAY DR (CBDCA)
     Route: 041

REACTIONS (14)
  - Growth retardation [Unknown]
  - Platelet count decreased [Unknown]
  - Neutrophil count decreased [Unknown]
  - Febrile neutropenia [Unknown]
  - Ovarian failure [Unknown]
  - Blood creatinine increased [Unknown]
  - Intermittent claudication [Unknown]
  - Delayed puberty [Unknown]
  - Anaemia [Unknown]
  - Hepatic function abnormal [Unknown]
  - Nausea [Unknown]
  - Vomiting [Unknown]
  - Stomatitis [Unknown]
  - Diarrhoea [Unknown]
